FAERS Safety Report 9837126 (Version 2)
Quarter: 2014Q2

REPORT INFORMATION
  Report Type: Spontaneous
  Country: US (occurrence: None)
  Receive Date: 20131205
  Receipt Date: 20140604
  Transmission Date: 20141212
  Serious: Yes (Hospitalization)
  Sender: FDA-Public Use
  Company Number: 163-POMAL-13083526

PATIENT
  Age: 69 Year
  Sex: Female

DRUGS (18)
  1. POMALYST(POMALIDOMIDE)(2 MILLIGRAM, CAPSULES) [Suspect]
     Indication: PLASMA CELL MYELOMA
     Dosage: 2 MG, 21 IN 21 D, PO
     Route: 048
     Dates: start: 20130621
  2. POMALYST(POMALIDOMIDE)(2 MILLIGRAM, CAPSULES) [Suspect]
     Indication: AMYLOIDOSIS
     Dosage: 2 MG, 21 IN 21 D, PO
     Route: 048
     Dates: start: 20130621
  3. DECADRON (DEXAMETHASONE) [Concomitant]
  4. CEPHALEXIN [Concomitant]
  5. XANAX (ALPRAZOLAM) [Concomitant]
  6. ASPIRIN (ACETYLSALICYLIC ACID) [Concomitant]
  7. ATORVASTATIN CALCIUM [Concomitant]
  8. COLACE (DOCUSATE SODIUM) [Concomitant]
  9. EVOXAC (CEVIMELINE HYDROCHLORIDE) [Concomitant]
  10. FRAGMIN (HEPARIN-FRACTION, SODIUM SALT) [Concomitant]
  11. LANSOPRAZOLE [Concomitant]
  12. LASIX (FUROSEMIDE) [Concomitant]
  13. LEVOTHYROXINE [Concomitant]
  14. METOPROLOL SUCCINATE [Concomitant]
  15. METOPROLOL TARTRATE [Concomitant]
  16. NITROSTAT (GLYCERYL TRINITRATE) [Concomitant]
  17. VITAMIN D (ERGOCALCIFEROL) [Concomitant]
  18. VITAMIN D3 (COLECALCIFEROL) [Concomitant]

REACTIONS (1)
  - Deep vein thrombosis [None]
